FAERS Safety Report 17048094 (Version 4)
Quarter: 2020Q1

REPORT INFORMATION
  Report Type: Spontaneous
  Country: GB (occurrence: GB)
  Receive Date: 20191119
  Receipt Date: 20200318
  Transmission Date: 20200409
  Serious: Yes (Other)
  Sender: FDA-Public Use
  Company Number: GB-HRARD-201900891

PATIENT
  Sex: Male
  Weight: 137 kg

DRUGS (20)
  1. LEVOTHYROXINE. [Concomitant]
     Active Substance: LEVOTHYROXINE
     Indication: PRODUCT USED FOR UNKNOWN INDICATION
     Dates: start: 20190801
  2. OMEPRAZOLE. [Concomitant]
     Active Substance: OMEPRAZOLE
     Indication: PRODUCT USED FOR UNKNOWN INDICATION
  3. CYCLIZINE [Concomitant]
     Active Substance: CYCLIZINE
     Indication: PRODUCT USED FOR UNKNOWN INDICATION
  4. TADALAFIL. [Concomitant]
     Active Substance: TADALAFIL
     Indication: PRODUCT USED FOR UNKNOWN INDICATION
     Dosage: 10 MG AS DIRECTED
  5. LYSODREN [Suspect]
     Active Substance: MITOTANE
     Indication: ADRENOCORTICAL CARCINOMA
     Dosage: 8500 MG DAILY
     Route: 048
     Dates: start: 20191007, end: 20191023
  6. OXYCODONE [Concomitant]
     Active Substance: OXYCODONE
     Indication: PRODUCT USED FOR UNKNOWN INDICATION
     Dosage: MODIFIED RELEASE
  7. RAMIPRIL. [Concomitant]
     Active Substance: RAMIPRIL
     Indication: PRODUCT USED FOR UNKNOWN INDICATION
     Dates: start: 20191010
  8. AMLODIPINE [Concomitant]
     Active Substance: AMLODIPINE BESYLATE
     Indication: PRODUCT USED FOR UNKNOWN INDICATION
  9. LYSODREN [Suspect]
     Active Substance: MITOTANE
     Indication: ADRENOCORTICAL CARCINOMA
     Dosage: LEVEL DEPENDENT THROUGH TREATMENT
     Route: 048
     Dates: start: 20181201
  10. LYSODREN [Suspect]
     Active Substance: MITOTANE
     Indication: ADRENOCORTICAL CARCINOMA
     Dosage: 1800 MG DAILY
     Route: 048
     Dates: start: 20191102, end: 20191104
  11. LYSODREN [Suspect]
     Active Substance: MITOTANE
     Indication: ADRENOCORTICAL CARCINOMA
     Route: 048
     Dates: start: 20191230, end: 20200124
  12. CYCLIZINE [Concomitant]
     Active Substance: CYCLIZINE
     Indication: PRODUCT USED FOR UNKNOWN INDICATION
     Dosage: AS NEEDED
  13. SALBUTAMOL [Concomitant]
     Active Substance: ALBUTEROL
     Indication: PRODUCT USED FOR UNKNOWN INDICATION
     Dosage: AS NEEDED
     Route: 055
  14. HYDROCORTISONE. [Concomitant]
     Active Substance: HYDROCORTISONE
     Indication: PRODUCT USED FOR UNKNOWN INDICATION
     Dosage: 20 MG MORNING, 10 MG AT 12.00 AND 10 MG AT 06.00 PM
  15. LOPERAMIDE [Concomitant]
     Active Substance: LOPERAMIDE
     Indication: PRODUCT USED FOR UNKNOWN INDICATION
     Dosage: AS NEEDED
  16. PARACETAMOL [Concomitant]
     Active Substance: ACETAMINOPHEN
     Indication: PRODUCT USED FOR UNKNOWN INDICATION
     Dosage: AS NEEDED
  17. OMEPRAZOLE. [Concomitant]
     Active Substance: OMEPRAZOLE
     Indication: PRODUCT USED FOR UNKNOWN INDICATION
  18. PARACETAMOL [Concomitant]
     Active Substance: ACETAMINOPHEN
     Indication: PRODUCT USED FOR UNKNOWN INDICATION
     Dosage: AS NEEDED
  19. OXYCODONE [Concomitant]
     Active Substance: OXYCODONE
     Indication: PRODUCT USED FOR UNKNOWN INDICATION
     Dosage: IMMEDIATE RELEASE, AS NEEDED
  20. GRANISETRON [Concomitant]
     Active Substance: GRANISETRON
     Indication: PRODUCT USED FOR UNKNOWN INDICATION
     Dosage: AS NEEDED

REACTIONS (7)
  - Gastrointestinal disorder [Unknown]
  - Pyoderma gangrenosum [Recovering/Resolving]
  - Paraesthesia [Unknown]
  - Hypothyroidism [Unknown]
  - Fatigue [Unknown]
  - Nausea [Unknown]
  - Off label use [Unknown]

NARRATIVE: CASE EVENT DATE: 201812
